FAERS Safety Report 25111220 (Version 3)
Quarter: 2025Q2

REPORT INFORMATION
  Report Type: Spontaneous
  Country: GB (occurrence: GB)
  Receive Date: 20250324
  Receipt Date: 20250403
  Transmission Date: 20250716
  Serious: Yes (Death)
  Sender: TEVA
  Company Number: GB-TEVA-VS-3311949

PATIENT
  Sex: Female

DRUGS (2)
  1. TRIMETHOPRIM [Suspect]
     Active Substance: TRIMETHOPRIM
     Indication: Product used for unknown indication
     Route: 065
  2. METHOTREXATE [Suspect]
     Active Substance: METHOTREXATE
     Indication: Product used for unknown indication
     Route: 058

REACTIONS (3)
  - Neutropenic sepsis [Fatal]
  - Drug interaction [Fatal]
  - Labelled drug-drug interaction issue [Fatal]
